FAERS Safety Report 10158163 (Version 2)
Quarter: 2014Q2

REPORT INFORMATION
  Report Type: Spontaneous
  Country: US (occurrence: US)
  Receive Date: 20140507
  Receipt Date: 20140605
  Transmission Date: 20141212
  Serious: Yes (Other)
  Sender: FDA-Public Use
  Company Number: US-TEVA-480141USA

PATIENT
  Age: 26 Year
  Sex: Female
  Weight: 52.21 kg

DRUGS (2)
  1. PARAGARD 380A [Suspect]
     Indication: CONTRACEPTION
     Route: 015
     Dates: start: 20140306, end: 20140522
  2. PARAGARD 380A [Suspect]
     Route: 015
     Dates: start: 20140522

REACTIONS (2)
  - Device dislocation [Recovered/Resolved]
  - Muscle spasms [Unknown]
